FAERS Safety Report 4733056-7 (Version None)
Quarter: 2005Q3

REPORT INFORMATION
  Report Type: 
  Country: None (occurrence: None)
  Receive Date: 20050803
  Receipt Date: 20050712
  Transmission Date: 20060218
  Serious: Yes (Death, Life-Threatening)
  Sender: FDA-Public Use
  Company Number: PHHO2005JP11030

PATIENT
  Age: 73 Year
  Sex: Male
  Weight: 41 kg

DRUGS (2)
  1. GLEEVEC [Suspect]
     Indication: SPINDLE CELL SARCOMA
     Dosage: 100 MG, BID
     Route: 048
     Dates: start: 20050619, end: 20050626
  2. CIPROXAN [Suspect]

REACTIONS (9)
  - BLOOD BILIRUBIN INCREASED [None]
  - DEPRESSED LEVEL OF CONSCIOUSNESS [None]
  - HYPOXIA [None]
  - INTERSTITIAL LUNG DISEASE [None]
  - MALIGNANT NEOPLASM PROGRESSION [None]
  - PSEUDOMONAS INFECTION [None]
  - PULMONARY OEDEMA [None]
  - PYREXIA [None]
  - RESPIRATORY FAILURE [None]
